FAERS Safety Report 24838845 (Version 1)
Quarter: 2025Q1

REPORT INFORMATION
  Report Type: Spontaneous
  Country: CA (occurrence: CA)
  Receive Date: 20250114
  Receipt Date: 20250114
  Transmission Date: 20250409
  Serious: Yes (Hospitalization)
  Sender: AMGEN
  Company Number: CA-AMGEN-CANSP2025004285

PATIENT
  Age: 64 Year
  Sex: Female
  Weight: 81 kg

DRUGS (1)
  1. PROLIA [Suspect]
     Active Substance: DENOSUMAB
     Indication: Osteoporosis
     Dosage: 60 MILLIGRAM, Q6MO
     Route: 058

REACTIONS (14)
  - Nausea [Recovered/Resolved]
  - General physical health deterioration [Recovered/Resolved]
  - Areflexia [Recovered/Resolved]
  - Blood albumin abnormal [Recovered/Resolved]
  - Diarrhoea [Recovered/Resolved]
  - Escherichia bacteraemia [Recovered/Resolved]
  - Hypophosphataemia [Recovered/Resolved]
  - Motor dysfunction [Recovered/Resolved]
  - Physical deconditioning [Recovered/Resolved]
  - Similar reaction on previous exposure to drug [Recovered/Resolved]
  - Myalgia [Recovered/Resolved]
  - Arthralgia [Recovered/Resolved]
  - Asthenia [Recovered/Resolved]
  - Hypocalcaemia [Recovered/Resolved]
